FAERS Safety Report 9435107 (Version 2)
Quarter: 2014Q1

REPORT INFORMATION
  Report Type: Spontaneous
  Country: US (occurrence: US)
  Receive Date: 20130801
  Receipt Date: 20140121
  Transmission Date: 20141002
  Serious: Yes (Hospitalization)
  Sender: FDA-Public Use
  Company Number: US-B.I. PHARMACEUTICALS,INC./RIDGEFIELD-2013-BI-22444BP

PATIENT
  Sex: Female
  Weight: 81.65 kg

DRUGS (8)
  1. PRADAXA [Suspect]
     Indication: ATRIAL FIBRILLATION
     Dosage: 300 MG
     Dates: start: 20110119, end: 201110
  2. PRADAXA [Suspect]
     Dosage: 150 MG
     Dates: end: 20120807
  3. ACETAMINOPHEN [Concomitant]
  4. RAMIPRIL [Concomitant]
     Dosage: 5 MG
     Dates: start: 200509
  5. TRICOR [Concomitant]
     Dates: start: 200608
  6. PANTOPRAZOLE [Concomitant]
  7. FUROSEMIDE [Concomitant]
     Dates: start: 201004
  8. ASPIRIN [Concomitant]

REACTIONS (4)
  - Gastrointestinal haemorrhage [Unknown]
  - Gastrointestinal haemorrhage [Unknown]
  - Haemorrhagic anaemia [Unknown]
  - Haemorrhagic anaemia [Unknown]
